FAERS Safety Report 9639442 (Version 2)
Quarter: 2014Q1

REPORT INFORMATION
  Report Type: Spontaneous
  Country: DE (occurrence: DE)
  Receive Date: 20131022
  Receipt Date: 20140317
  Transmission Date: 20141002
  Serious: Yes (Hospitalization, Other)
  Sender: FDA-Public Use
  Company Number: DE-PFIZER INC-2013298758

PATIENT
  Age: 50 Year
  Sex: Male
  Weight: 93 kg

DRUGS (14)
  1. LAMOTRIGINE [Suspect]
     Dosage: UNK
     Dates: end: 201309
  2. LYRICA [Suspect]
     Indication: FIBROMYALGIA
     Dosage: 50 MG, 2X/DAY
     Dates: start: 20130117, end: 201304
  3. LYRICA [Suspect]
     Indication: PAIN
     Dosage: 75 MG, 2X/DAY
     Dates: start: 201304, end: 201308
  4. AMIODARONE [Concomitant]
     Dosage: 200 MG, 1X/DAY
  5. PRADAXA [Concomitant]
     Dosage: 75 MG, 2X/DAY
  6. PULMICORT [Concomitant]
     Dosage: 200 UG, 2X/DAY
  7. BERODUAL [Concomitant]
     Dosage: 50 UG, 3X/DAY
  8. MIRTAZAPINE [Concomitant]
     Dosage: 7.5 MG, 1X/DAY
  9. QUENSYL [Concomitant]
     Dosage: 200 MG, 2X/DAY
     Dates: end: 201307
  10. PANTOPRAZOL [Concomitant]
     Dosage: 20 MG, 2X/DAY
  11. TRAMADOL [Concomitant]
     Dosage: 50 MG, 2-0-2 AS NEEDED
  12. ZOPLICONE [Concomitant]
     Dosage: 7.5 MG, 0-0-1 AS NEEDED
  13. PREDNISOLON [Concomitant]
     Dosage: 5 MG,0-0-1 AS NEEDED
  14. NOVALGIN [Concomitant]

REACTIONS (4)
  - Blood creatine phosphokinase increased [Unknown]
  - Atrial flutter [Unknown]
  - Rhabdomyolysis [Unknown]
  - Depression [Unknown]
